FAERS Safety Report 8849251 (Version 1)
Quarter: 2012Q4

REPORT INFORMATION
  Report Type: 
  Country: CA (occurrence: CA)
  Receive Date: 20121019
  Receipt Date: 20121019
  Transmission Date: 20130627
  Serious: Yes (Other)
  Sender: FDA-Public Use
  Company Number: CA-US-EMD SERONO, INC.-7168093

PATIENT
  Age: 45 Year
  Sex: Female

DRUGS (4)
  1. REBIF [Suspect]
     Indication: PRODUCT USED FOR UNKNOWN INDICATION
     Route: 058
  2. REBIF [Suspect]
     Route: 058
  3. OLMETEC [Suspect]
     Indication: PRODUCT USED FOR UNKNOWN INDICATION
     Route: 048
  4. PROZAC [Suspect]
     Indication: PRODUCT USED FOR UNKNOWN INDICATION
     Route: 065

REACTIONS (6)
  - Optic neuritis [Unknown]
  - White blood cell count abnormal [Unknown]
  - Oedema peripheral [Unknown]
  - Hypersensitivity [Unknown]
  - Pruritus [Unknown]
  - Urticaria [Unknown]
